FAERS Safety Report 6091842-8 (Version None)
Quarter: 2009Q1

REPORT INFORMATION
  Report Type: 
  Country: None (occurrence: None)
  Receive Date: 20090225
  Receipt Date: 20080728
  Transmission Date: 20090719
  Serious: No
  Sender: FDA-Public Use
  Company Number: A0740970A

PATIENT

DRUGS (1)
  1. VALTREX [Suspect]
     Route: 065
     Dates: start: 20080719

REACTIONS (4)
  - APPENDIX DISORDER [None]
  - GROIN PAIN [None]
  - HYPOAESTHESIA [None]
  - PYREXIA [None]
